FAERS Safety Report 14081296 (Version 1)
Quarter: 2017Q4

REPORT INFORMATION
  Report Type: Spontaneous
  Country: US (occurrence: US)
  Receive Date: 20171012
  Receipt Date: 20171012
  Transmission Date: 20180321
  Serious: No
  Sender: FDA-Public Use
  Company Number: US-BAYER-2017-197336

PATIENT
  Sex: Male

DRUGS (1)
  1. GADAVIST [Suspect]
     Active Substance: GADOBUTROL
     Dosage: 10 ML, ONCE
     Route: 042
     Dates: start: 20171007, end: 20171007

REACTIONS (3)
  - Cough [Unknown]
  - Vomiting [Unknown]
  - Throat irritation [Unknown]

NARRATIVE: CASE EVENT DATE: 20171007
